FAERS Safety Report 5712679-2 (Version None)
Quarter: 2008Q2

REPORT INFORMATION
  Report Type: 
  Country: None (occurrence: None)
  Receive Date: 20080418
  Receipt Date: 20080403
  Transmission Date: 20081010
  Serious: Yes (Hospitalization, Other)
  Sender: FDA-Public Use
  Company Number: S08-FRA-01418-01

PATIENT
  Age: 87 Year
  Sex: Female

DRUGS (7)
  1. CITALOPRAM HYDROBROMIDE [Suspect]
     Indication: DEPRESSION
     Dosage: 20 MG QD PO
     Route: 048
     Dates: start: 20070101, end: 20080130
  2. THERALENE (ALIMEMAZINE TARTRATE) [Suspect]
     Indication: SLEEP DISORDER
     Dosage: 5 MG QD PO
     Route: 048
     Dates: start: 20010101, end: 20080130
  3. MONOCRIXO (TRAMADOL HYDROCHLORIDE) [Suspect]
     Indication: TENDONITIS
     Dosage: 150 MG QD PO
     Route: 048
     Dates: start: 20071101, end: 20080202
  4. OMEPRAZOLE [Suspect]
     Indication: ABDOMINAL PAIN UPPER
     Dosage: 1 QD PO
     Route: 048
     Dates: start: 20071101, end: 20080206
  5. ACETAMINOPHEN [Concomitant]
  6. SPIFEN (IBUPROFEN) [Concomitant]
  7. HELICIDINE [Concomitant]

REACTIONS (18)
  - AORTIC STENOSIS [None]
  - ATRIOVENTRICULAR BLOCK FIRST DEGREE [None]
  - BLOOD POTASSIUM INCREASED [None]
  - BRADYCARDIA [None]
  - CAROTID ARTERIOSCLEROSIS [None]
  - CAROTID ARTERY STENOSIS [None]
  - CREATININE RENAL CLEARANCE DECREASED [None]
  - DRUG INTERACTION [None]
  - EAR HAEMORRHAGE [None]
  - FALL [None]
  - HAEMATOMA [None]
  - INJURY [None]
  - LOSS OF CONSCIOUSNESS [None]
  - ORTHOSTATIC HYPOTENSION [None]
  - SKULL FRACTURED BASE [None]
  - SUPRAVENTRICULAR EXTRASYSTOLES [None]
  - SYNCOPE [None]
  - WHITE BLOOD CELL COUNT INCREASED [None]
